FAERS Safety Report 14705742 (Version 2)
Quarter: 2018Q2

REPORT INFORMATION
  Report Type: Spontaneous
  Country: NL (occurrence: NL)
  Receive Date: 20180402
  Receipt Date: 20180517
  Transmission Date: 20180711
  Serious: Yes (Death, Hospitalization, Other)
  Sender: FDA-Public Use
  Company Number: NL-BAYER-2018-057593

PATIENT
  Age: 64 Year
  Sex: Male

DRUGS (7)
  1. DICLOFENAC [Concomitant]
     Active Substance: DICLOFENAC
     Dosage: 50 MG, TID
  2. XOFIGO [Suspect]
     Active Substance: RADIUM RA-223 DICHLORIDE
     Indication: METASTASES TO BONE
  3. FENTANYL. [Concomitant]
     Active Substance: FENTANYL
     Dosage: 12 MCG
  4. XOFIGO [Suspect]
     Active Substance: RADIUM RA-223 DICHLORIDE
     Indication: HORMONE-REFRACTORY PROSTATE CANCER
     Dosage: UNK
     Dates: start: 20170720, end: 201711
  5. PREDNISOLON [Concomitant]
     Active Substance: PREDNISOLONE
     Dosage: 20 MG, QD
  6. PARACETAMOL [Concomitant]
     Active Substance: ACETAMINOPHEN
  7. ABSTRAL [Concomitant]
     Active Substance: FENTANYL CITRATE
     Dosage: AS NEEDED

REACTIONS (10)
  - Metastases to bone [None]
  - Pathological fracture [None]
  - Febrile neutropenia [None]
  - Cancer pain [None]
  - Fall [None]
  - Pneumonia [None]
  - Rectal haemorrhage [None]
  - Pathological fracture [None]
  - Metastases to spine [None]
  - Patella fracture [None]

NARRATIVE: CASE EVENT DATE: 20170720
